FAERS Safety Report 16482224 (Version 2)
Quarter: 2020Q2

REPORT INFORMATION
  Report Type: Report from Study
  Country: DE (occurrence: DE)
  Receive Date: 20190627
  Receipt Date: 20200605
  Transmission Date: 20200713
  Serious: Yes (Life-Threatening, Hospitalization, Other)
  Sender: FDA-Public Use
  Company Number: DE-SUN PHARMACEUTICAL INDUSTRIES LTD-2019R1-211734

PATIENT
  Age: 41 Year
  Sex: Male

DRUGS (5)
  1. PHENPROCOUMON [Concomitant]
     Active Substance: PHENPROCOUMON
     Indication: ATRIAL FIBRILLATION
  2. PHENPROCOUMON [Concomitant]
     Active Substance: PHENPROCOUMON
     Indication: CORONARY ARTERY DISEASE
  3. ACETYLSALICYLIC ACID [Suspect]
     Active Substance: ASPIRIN
     Indication: TOOTHACHE
     Dosage: UNK
     Route: 065
  4. METAMIZOLE [Suspect]
     Active Substance: METAMIZOLE
     Indication: TOOTHACHE
     Dosage: UNK
     Route: 065
  5. PHENPROCOUMON [Concomitant]
     Active Substance: PHENPROCOUMON
     Indication: MYOCARDIAL ISCHAEMIA

REACTIONS (7)
  - Tongue haematoma [Unknown]
  - Upper airway obstruction [Unknown]
  - Self-medication [Unknown]
  - Pharyngeal haematoma [Unknown]
  - Coagulopathy [Unknown]
  - Drug level above therapeutic [Unknown]
  - Haemorrhage [Unknown]
